FAERS Safety Report 11146632 (Version 1)
Quarter: 2015Q2

REPORT INFORMATION
  Report Type: Spontaneous
  Country: IN (occurrence: None)
  Receive Date: 20150526
  Receipt Date: 20150526
  Transmission Date: 20150821
  Serious: Yes (Life-Threatening, Hospitalization)
  Sender: FDA-Public Use
  Company Number: NSR_02088_2015

PATIENT
  Age: 43 Year
  Sex: Male

DRUGS (4)
  1. FENTANYL (FENTANYL) [Suspect]
     Active Substance: FENTANYL
     Indication: PRODUCT USED FOR UNKNOWN INDICATION
     Dosage: 50 MCG (0.83 MCG/KG, IN DILUTION OF 1 ML = 50 MCG), ONCE
     Route: 042
  2. TRAMADOL (TRAMADOL) [Suspect]
     Active Substance: TRAMADOL
     Indication: PRODUCT USED FOR UNKNOWN INDICATION
     Dosage: 75 MG (1.25 MG/KG, IN DILUTION OF 1 ML = 20 MG) ADMINISTERED SLOWLY OVER 2-3 MINUTES
     Route: 042
  3. IBUPROFEN. [Concomitant]
     Active Substance: IBUPROFEN
  4. GABAPENTIN. [Concomitant]
     Active Substance: GABAPENTIN

REACTIONS (8)
  - Supraventricular tachycardia [None]
  - Ventricular extrasystoles [None]
  - Serotonin syndrome [None]
  - Agitation [None]
  - Ventricular tachycardia [None]
  - Drug interaction [None]
  - Ventricular fibrillation [None]
  - Toxicity to various agents [None]
